FAERS Safety Report 20632997 (Version 1)
Quarter: 2022Q1

REPORT INFORMATION
  Report Type: Spontaneous
  Country: US (occurrence: US)
  Receive Date: 20220324
  Receipt Date: 20220324
  Transmission Date: 20220423
  Serious: No
  Sender: FDA-Public Use
  Company Number: US-UPSHER-SMITH LABORATORIES, LLC-2021USL00663

PATIENT
  Sex: Male
  Weight: 70.295 kg

DRUGS (10)
  1. PREVALITE [Suspect]
     Active Substance: CHOLESTYRAMINE
     Indication: Diarrhoea
     Dosage: 1 DOSAGE UNITS, EVERY 48 HOURS
  2. PREVALITE [Suspect]
     Active Substance: CHOLESTYRAMINE
     Indication: Bile output increased
     Dosage: 1 DOSAGE UNITS, EVERY 48 HOURS
  3. PREVALITE [Suspect]
     Active Substance: CHOLESTYRAMINE
     Dosage: 1 DOSAGE UNITS, 1X/DAY
     Dates: end: 20210915
  4. RAMIPRIL [Concomitant]
     Active Substance: RAMIPRIL
  5. ASPIRIN [Concomitant]
     Active Substance: ASPIRIN
  6. GLIMEPIRIDE [Concomitant]
     Active Substance: GLIMEPIRIDE
  7. METOPROLOL [Concomitant]
     Active Substance: METOPROLOL
  8. LOVASTATIN [Concomitant]
     Active Substance: LOVASTATIN
  9. EZETIMIBE [Concomitant]
     Active Substance: EZETIMIBE
  10. XARELTO [Concomitant]
     Active Substance: RIVAROXABAN
     Dosage: UNK, 2X/DAY

REACTIONS (3)
  - Weight decreased [Not Recovered/Not Resolved]
  - Faeces discoloured [Not Recovered/Not Resolved]
  - Drug ineffective for unapproved indication [Not Recovered/Not Resolved]

NARRATIVE: CASE EVENT DATE: 20210101
